FAERS Safety Report 25926401 (Version 1)
Quarter: 2025Q4

REPORT INFORMATION
  Report Type: Spontaneous
  Country: US (occurrence: None)
  Receive Date: 20251014
  Receipt Date: 20251014
  Transmission Date: 20260118
  Serious: Yes (Hospitalization)
  Sender: FDA-CTU
  Company Number: None

PATIENT
  Sex: Male

DRUGS (1)
  1. XEOMIN [Suspect]
     Active Substance: INCOBOTULINUMTOXINA
     Indication: Parkinson^s disease
     Dosage: OTHER STRENGTH : 100 U/VL;?OTHER FREQUENCY : EVERY 90 DAYS;?
     Route: 030
     Dates: start: 20241014

REACTIONS (4)
  - Diplopia [None]
  - Cardiac disorder [None]
  - Cerebrovascular accident [None]
  - Therapy cessation [None]
